FAERS Safety Report 18344597 (Version 3)
Quarter: 2021Q1

REPORT INFORMATION
  Report Type: Report from Study
  Country: ES (occurrence: ES)
  Receive Date: 20201005
  Receipt Date: 20210318
  Transmission Date: 20210419
  Serious: Yes (Hospitalization, Other)
  Sender: FDA-Public Use
  Company Number: ES-AMGEN-ESPCT2020158562

PATIENT
  Age: 76 Year
  Sex: Female
  Weight: 74.6 kg

DRUGS (5)
  1. PANITUMUMAB [Suspect]
     Active Substance: PANITUMUMAB
     Indication: COLORECTAL CANCER METASTATIC
     Dosage: 450 MILLIGRAM, Q2WK
     Route: 042
     Dates: start: 20200820
  2. IRINOTECAN [Suspect]
     Active Substance: IRINOTECAN
     Indication: COLORECTAL CANCER METASTATIC
     Dosage: 310 MILLIGRAM, Q2WK
     Route: 042
     Dates: start: 20200820
  3. 5?FLUOROURACIL [FLUOROURACIL] [Suspect]
     Active Substance: FLUOROURACIL
     Dosage: 4100 MILLIGRAM, Q2WK
     Route: 041
     Dates: start: 20200820
  4. 5?FLUOROURACIL [FLUOROURACIL] [Suspect]
     Active Substance: FLUOROURACIL
     Indication: COLORECTAL CANCER METASTATIC
     Dosage: 690 MILLIGRAM, Q2WK
     Route: 040
     Dates: start: 20200820
  5. FOLINIC ACID [Suspect]
     Active Substance: LEUCOVORIN
     Indication: COLORECTAL CANCER METASTATIC
     Dosage: 690 MILLIGRAM, Q2WK
     Route: 042
     Dates: start: 20200820

REACTIONS (1)
  - Klebsiella sepsis [Recovered/Resolved]

NARRATIVE: CASE EVENT DATE: 20200903
